FAERS Safety Report 17431151 (Version 3)
Quarter: 2020Q1

REPORT INFORMATION
  Report Type: Report from Study
  Country: US (occurrence: US)
  Receive Date: 20200218
  Receipt Date: 20200323
  Transmission Date: 20200409
  Serious: Yes (Other)
  Sender: FDA-Public Use
  Company Number: US-PFIZER INC-2020070015

PATIENT
  Age: 76 Year
  Sex: Female

DRUGS (1)
  1. XELJANZ XR [Suspect]
     Active Substance: TOFACITINIB CITRATE
     Dosage: 11 MG, UNK
     Dates: start: 20190131

REACTIONS (6)
  - Infection [Unknown]
  - Fall [Unknown]
  - Dysphonia [Unknown]
  - Weight increased [Unknown]
  - Transient ischaemic attack [Unknown]
  - Constipation [Unknown]
